FAERS Safety Report 5904862-8 (Version None)
Quarter: 2008Q4

REPORT INFORMATION
  Report Type: 
  Country: None (occurrence: None)
  Receive Date: 20081001
  Receipt Date: 20080925
  Transmission Date: 20090506
  Serious: Yes (Hospitalization)
  Sender: FDA-Public Use
  Company Number: A0749230A

PATIENT
  Sex: Female

DRUGS (3)
  1. DYNACIRC CR [Suspect]
     Indication: HYPERTENSION
     Route: 048
     Dates: start: 20060101, end: 20080101
  2. COREG [Concomitant]
     Indication: HYPERTENSION
  3. OTHER MEDICATIONS [Concomitant]

REACTIONS (3)
  - CONSTIPATION [None]
  - DIVERTICULITIS [None]
  - INTESTINAL RESECTION [None]
